FAERS Safety Report 4313145-1 (Version None)
Quarter: 2004Q1

REPORT INFORMATION
  Report Type: 
  Country: None (occurrence: None)
  Receive Date: 20040308
  Receipt Date: 20040126
  Transmission Date: 20041129
  Serious: Yes (Hospitalization)
  Sender: FDA-Public Use
  Company Number: 200410429JP

PATIENT
  Age: 20 Year
  Sex: 0
  Weight: 40 kg

DRUGS (5)
  1. ALLEGRA [Suspect]
     Indication: DERMATITIS ATOPIC
     Route: 048
     Dates: start: 20040110, end: 20040115
  2. THEO-DUR [Concomitant]
     Indication: ASTHMA
     Route: 048
  3. BISOLVON [Concomitant]
     Indication: ASTHMA
     Route: 048
  4. AZELASTINE HCL [Concomitant]
     Indication: ASTHMA
     Route: 048
  5. HYTHIOL [Concomitant]
     Indication: DERMATITIS ATOPIC
     Route: 048
     Dates: start: 20040110, end: 20040115

REACTIONS (5)
  - CONDITION AGGRAVATED [None]
  - DERMATITIS ATOPIC [None]
  - DRUG ERUPTION [None]
  - EXANTHEM [None]
  - FACE OEDEMA [None]
